FAERS Safety Report 25587503 (Version 1)
Quarter: 2025Q3

REPORT INFORMATION
  Report Type: Spontaneous
  Country: EU (occurrence: EU)
  Receive Date: 20250721
  Receipt Date: 20250721
  Transmission Date: 20251021
  Serious: Yes (Hospitalization, Other)
  Sender: AMGEN
  Company Number: EU-AMGEN-POLSP2025139790

PATIENT
  Age: 10 Year
  Sex: Female

DRUGS (10)
  1. ROMIPLOSTIM [Suspect]
     Active Substance: ROMIPLOSTIM
     Indication: Immune thrombocytopenia
     Route: 065
     Dates: start: 202201
  2. ROMIPLOSTIM [Suspect]
     Active Substance: ROMIPLOSTIM
     Route: 065
  3. IMMUNE GLOBULIN NOS [Concomitant]
     Active Substance: IMMUNE GLOBULIN NOS
     Dosage: 0.8 GRAM PER KILOGRAM  BODY WEIGHT, BID
  4. IMMUNE GLOBULIN NOS [Concomitant]
     Active Substance: IMMUNE GLOBULIN NOS
  5. IMMUNE GLOBULIN NOS [Concomitant]
     Active Substance: IMMUNE GLOBULIN NOS
  6. DEXAMETHASONE [Concomitant]
     Active Substance: DEXAMETHASONE
     Dosage: 40 MILLIGRAM, QD, FOR 4 CONSECUTIVE DAYS
  7. CORTICOSTEROID NOS [Concomitant]
     Active Substance: CORTICOSTEROID NOS
  8. PREDNISONE [Concomitant]
     Active Substance: PREDNISONE
  9. PREDNISONE [Concomitant]
     Active Substance: PREDNISONE
  10. PREDNISONE [Concomitant]
     Active Substance: PREDNISONE

REACTIONS (20)
  - Thrombocytopenia [Unknown]
  - Anaemia [Unknown]
  - Activated partial thromboplastin time prolonged [Unknown]
  - Hypoalbuminaemia [Unknown]
  - Protein urine present [Unknown]
  - Complement factor C3 decreased [Unknown]
  - Complement factor C4 decreased [Unknown]
  - Antiphospholipid antibodies positive [Unknown]
  - Antinuclear antibody increased [Unknown]
  - Systemic lupus erythematosus [Unknown]
  - Evans syndrome [Unknown]
  - Autoimmune anaemia [Unknown]
  - Heavy menstrual bleeding [Unknown]
  - Platelet count decreased [Unknown]
  - Swelling of eyelid [Unknown]
  - Joint swelling [Unknown]
  - Fatigue [Unknown]
  - Alopecia [Unknown]
  - Decreased appetite [Unknown]
  - Macrocytosis [Unknown]

NARRATIVE: CASE EVENT DATE: 20230101
